FAERS Safety Report 6022051-6 (Version None)
Quarter: 2008Q4

REPORT INFORMATION
  Report Type: 
  Country: None (occurrence: None)
  Receive Date: 20081223
  Receipt Date: 20081208
  Transmission Date: 20090506
  Serious: Yes (Hospitalization)
  Sender: FDA-Public Use
  Company Number: KV200801016

PATIENT
  Age: 72 Year
  Sex: Female
  Weight: 77.1 kg

DRUGS (7)
  1. MORPHINE SULFATE [Suspect]
     Indication: ARTHRITIS
     Dosage: BID, ORAL
     Route: 048
     Dates: start: 20080601, end: 20080801
  2. LORTAB [Concomitant]
  3. OXYCONTIN [Concomitant]
  4. LISINOPRIL [Concomitant]
  5. ALPRAZOLAM [Concomitant]
  6. CLONIDINE (CLONDINE) [Concomitant]
  7. TYLENOL WITH SODEINE NO. 3 (CODEINE PHOSPHATE, PARACETAMOL) [Concomitant]

REACTIONS (5)
  - AMNESIA [None]
  - DETOXIFICATION [None]
  - HALLUCINATION [None]
  - PNEUMONIA [None]
  - PRODUCT QUALITY ISSUE [None]
